FAERS Safety Report 23965921 (Version 2)
Quarter: 2024Q3

REPORT INFORMATION
  Report Type: Spontaneous
  Country: US (occurrence: US)
  Receive Date: 20240612
  Receipt Date: 20240910
  Transmission Date: 20241017
  Serious: No
  Sender: BRISTOL MYERS SQUIBB
  Company Number: US-BRISTOL-MYERS SQUIBB COMPANY-2024-092580

PATIENT
  Age: 51 Year
  Sex: Female

DRUGS (5)
  1. OPDIVO [Suspect]
     Active Substance: NIVOLUMAB
     Indication: Benign neoplasm of skin
     Dosage: DOSE : OPDIVO: 240 MG; YERVOY: 63 MG;     FREQ : OPDIVO - EVERY 2 WEEKS?YERVOY - EVERY 2 WEEKS
     Route: 042
     Dates: start: 20240321
  2. YERVOY [Suspect]
     Active Substance: IPILIMUMAB
     Indication: Benign neoplasm of skin
     Route: 042
     Dates: start: 20240321
  3. HYDROCODONE [Concomitant]
     Active Substance: HYDROCODONE
     Indication: Product used for unknown indication
  4. MELATONIN [Concomitant]
     Active Substance: MELATONIN
     Indication: Product used for unknown indication
  5. TRELEGY ELLIPTA [Concomitant]
     Active Substance: FLUTICASONE FUROATE\UMECLIDINIUM BROMIDE\VILANTEROL TRIFENATATE
     Indication: Product used for unknown indication

REACTIONS (1)
  - Off label use [Unknown]
